FAERS Safety Report 22587268 (Version 1)
Quarter: 2023Q2

REPORT INFORMATION
  Report Type: Spontaneous
  Country: CN (occurrence: CN)
  Receive Date: 20230612
  Receipt Date: 20230612
  Transmission Date: 20230722
  Serious: Yes (Other)
  Sender: FDA-Public Use
  Company Number: CN-TOLMAR, INC.-23CN041288

PATIENT
  Age: 32 Year
  Sex: Female

DRUGS (2)
  1. JATENZO [Suspect]
     Active Substance: TESTOSTERONE UNDECANOATE
     Indication: Off label use
     Dosage: UNK
     Dates: end: 2016
  2. CYCLOSPORINE [Suspect]
     Active Substance: CYCLOSPORINE
     Indication: Product used for unknown indication
     Dosage: UNK
     Dates: end: 2012

REACTIONS (2)
  - Bone marrow failure [Unknown]
  - Off label use [Unknown]
